FAERS Safety Report 5625453-2 (Version None)
Quarter: 2008Q1

REPORT INFORMATION
  Report Type: 
  Country: None (occurrence: None)
  Receive Date: 20080211
  Receipt Date: 20080130
  Transmission Date: 20080703
  Serious: Yes (Hospitalization)
  Sender: FDA-Public Use
  Company Number: 20084726

PATIENT
  Age: 59 Year
  Sex: Male

DRUGS (2)
  1. LIORESAL [Suspect]
     Indication: MUSCLE SPASTICITY
     Dosage: MCG,DAILY,INTRATHECAL
     Route: 037
  2. METHADONE HCL [Concomitant]

REACTIONS (10)
  - AMNESIA [None]
  - ANOXIA [None]
  - ANTEROGRADE AMNESIA [None]
  - ATAXIA [None]
  - COGNITIVE DISORDER [None]
  - COMA [None]
  - DYSPHAGIA [None]
  - MEDICATION ERROR [None]
  - MEMORY IMPAIRMENT [None]
  - RESPIRATORY ARREST [None]
